FAERS Safety Report 9252493 (Version 1)
Quarter: 2013Q1

REPORT INFORMATION
  Report Type: Spontaneous
  Country: US (occurrence: None)
  Receive Date: 20130305
  Receipt Date: 20130305
  Transmission Date: 20140127
  Serious: Yes (Other)
  Sender: FDA-Public Use
  Company Number: 163-21880-12052687

PATIENT
  Age: 78 Year
  Sex: Female
  Weight: 64.1 kg

DRUGS (8)
  1. REVLIMID [Suspect]
     Indication: PLASMA CELL MYELOMA
     Dosage: 10MG, 21 IN 21 D, PO
     Route: 048
     Dates: start: 20120509, end: 20120521
  2. DEXAMETHASONE (DEXAMETHASONE) [Concomitant]
  3. COZAAR (LOSARTAN POTASSIUM0 [Concomitant]
  4. HCTZ (HYDROCHLOROTHIAZIDE) [Concomitant]
  5. NADOLOL (NADOLOL) [Concomitant]
  6. SYNTROID (LEVOTHYROXINE SODIUM) [Concomitant]
  7. OMEPRAZOLE (OMEPRAZOLE) [Concomitant]
  8. VITAMINS (VITAMINS) [Concomitant]

REACTIONS (5)
  - Full blood count decreased [None]
  - Haemoglobin decreased [None]
  - Fatigue [None]
  - Abdominal distension [None]
  - Malaise [None]
